FAERS Safety Report 11398878 (Version 1)
Quarter: 2015Q3

REPORT INFORMATION
  Report Type: Spontaneous
  Country: US (occurrence: None)
  Receive Date: 20150804
  Receipt Date: 20150804
  Transmission Date: 20151125
  Serious: Yes (Other)
  Sender: FDA-Public Use
  Company Number: 1000067575

PATIENT
  Age: 77 Year
  Sex: Female

DRUGS (3)
  1. NAMENDA XR [Suspect]
     Active Substance: MEMANTINE HYDROCHLORIDE
     Indication: DEMENTIA
     Dates: start: 201403, end: 20140627
  2. SERTRALINE [Concomitant]
     Active Substance: SERTRALINE HYDROCHLORIDE
  3. ARICEPT [Concomitant]
     Active Substance: DONEPEZIL HYDROCHLORIDE

REACTIONS (5)
  - Memory impairment [None]
  - Staring [None]
  - Asthenia [None]
  - Hyperhidrosis [None]
  - Incontinence [None]

NARRATIVE: CASE EVENT DATE: 2014
